FAERS Safety Report 20635656 (Version 1)
Quarter: 2022Q1

REPORT INFORMATION
  Report Type: Spontaneous
  Country: US (occurrence: None)
  Receive Date: 20220324
  Receipt Date: 20220324
  Transmission Date: 20220423
  Serious: No
  Sender: FDA-Public Use
  Company Number: None

PATIENT
  Age: 19 Month
  Sex: Male
  Weight: 10 kg

DRUGS (1)
  1. FULPHILA [Suspect]
     Active Substance: PEGFILGRASTIM-JMDB

REACTIONS (1)
  - Device use confusion [None]

NARRATIVE: CASE EVENT DATE: 20220315
